FAERS Safety Report 8900555 (Version 1)
Quarter: 2012Q4

REPORT INFORMATION
  Report Type: 
  Country: NL (occurrence: NL)
  Receive Date: 20121109
  Receipt Date: 20121109
  Transmission Date: 20130627
  Serious: Yes (Hospitalization)
  Sender: FDA-Public Use
  Company Number: NL-TEVA-367936ISR

PATIENT

DRUGS (1)
  1. LITHIUM [Suspect]
     Route: 064

REACTIONS (3)
  - Syncope [Unknown]
  - Foetal exposure during pregnancy [Unknown]
  - Pregnancy [Unknown]
